FAERS Safety Report 6373920-9 (Version None)
Quarter: 2009Q3

REPORT INFORMATION
  Report Type: 
  Country: None (occurrence: None)
  Receive Date: 20090924
  Receipt Date: 20090518
  Transmission Date: 20100115
  Serious: No
  Sender: FDA-Public Use
  Company Number: US-ASTRAZENECA-2009UW12784

PATIENT
  Age: 46 Year
  Sex: Male
  Weight: 117.9 kg

DRUGS (8)
  1. SEROQUEL [Suspect]
     Dosage: 600-900 MG DAILY
     Route: 048
     Dates: end: 20080901
  2. NEXIUM [Concomitant]
     Indication: ABDOMINAL PAIN
  3. PAXIL [Concomitant]
  4. DEPAKOTE [Concomitant]
  5. INVEGA [Concomitant]
  6. GEMFIBROZIL [Concomitant]
     Indication: BLOOD CHOLESTEROL INCREASED
  7. NSAID [Concomitant]
     Indication: BACK PAIN
  8. PRASIZONE [Concomitant]

REACTIONS (4)
  - ABDOMINAL PAIN [None]
  - DRY MOUTH [None]
  - SOMNOLENCE [None]
  - WEIGHT INCREASED [None]
